FAERS Safety Report 23368543 (Version 2)
Quarter: 2024Q1

REPORT INFORMATION
  Report Type: Spontaneous
  Country: US (occurrence: US)
  Receive Date: 20240105
  Receipt Date: 20240328
  Transmission Date: 20240410
  Serious: No
  Sender: FDA-Public Use
  Company Number: US-ARDELYX-2023ARDX000849

PATIENT
  Sex: Male
  Weight: 67 kg

DRUGS (9)
  1. IBSRELA [Suspect]
     Active Substance: TENAPANOR HYDROCHLORIDE
     Indication: Constipation
     Dosage: 50 MILLIGRAM, QD
     Route: 048
     Dates: end: 20231121
  2. FLUDROCORTISONE [Concomitant]
     Active Substance: FLUDROCORTISONE
     Indication: Hypotension
     Dosage: 0.1 MILLIGRAM, BID
     Route: 065
  3. LEVOTHYROXINE [Concomitant]
     Active Substance: LEVOTHYROXINE\LEVOTHYROXINE SODIUM
     Indication: Thyroid disorder
     Dosage: 50 MILLICURIE, QD
     Route: 065
  4. PLAVIX [Concomitant]
     Active Substance: CLOPIDOGREL BISULFATE
     Indication: Product used for unknown indication
     Dosage: 75 MILLIGRAM, QD
     Route: 065
  5. POTASSIUM [Concomitant]
     Active Substance: POTASSIUM
     Indication: Product used for unknown indication
     Dosage: 20 MILLIEQUIVALENT, BID
     Route: 065
  6. FINASTERIDE [Concomitant]
     Active Substance: FINASTERIDE
     Indication: Prostate examination abnormal
     Dosage: 5 MILLIGRAM, QD
     Route: 065
  7. VITAMIN B12 [Concomitant]
     Active Substance: CYANOCOBALAMIN
     Indication: Product used for unknown indication
     Dosage: 1000 MILLICURIE
     Route: 065
  8. MAGNESIUM GLUCONATE [Concomitant]
     Active Substance: MAGNESIUM GLUCONATE
     Indication: Product used for unknown indication
     Dosage: 200 MILLIGRAM, QD
     Route: 065
  9. MINERALS\VITAMINS [Concomitant]
     Active Substance: MINERALS\VITAMINS
     Indication: Product used for unknown indication
     Dosage: 1 UNK, BID (1 N/A BID)
     Route: 065

REACTIONS (7)
  - Anxiety [Recovered/Resolved]
  - Dyspnoea [Recovered/Resolved]
  - Agitation [Recovered/Resolved]
  - Underdose [Unknown]
  - Therapeutic product effect decreased [Unknown]
  - Off label use [Unknown]
  - Inappropriate schedule of product administration [Unknown]
